FAERS Safety Report 5064827-8 (Version None)
Quarter: 2006Q3

REPORT INFORMATION
  Report Type: 
  Country: None (occurrence: None)
  Receive Date: 20060725
  Receipt Date: 20060718
  Transmission Date: 20061208
  Serious: Yes (Other)
  Sender: FDA-Public Use
  Company Number: CIP06001637

PATIENT
  Sex: Female

DRUGS (2)
  1. ACTONEL [Suspect]
     Indication: BONE DENSITY DECREASED
     Dosage: ONCE WEEKLY, ORAL
     Route: 048
  2. CLUCOCORTICOSTEROIDS INHALER [Concomitant]

REACTIONS (4)
  - ASTHMA [None]
  - CONDITION AGGRAVATED [None]
  - DYSPNOEA [None]
  - RESPIRATORY TRACT INFECTION [None]
